FAERS Safety Report 8494112-3 (Version None)
Quarter: 2012Q3

REPORT INFORMATION
  Report Type: 
  Country: None (occurrence: None)
  Receive Date: 20120702
  Receipt Date: 20120702
  Transmission Date: 20120928
  Serious: Yes (Hospitalization)
  Sender: FDA-Public Use
  Company Number: None

PATIENT
  Age: 39 Year
  Sex: Female
  Weight: 72.5755 kg

DRUGS (1)
  1. ASPIRIN [Suspect]
     Indication: HEART RATE INCREASED
     Dosage: 4 325MG W/IN 1 HR
     Dates: start: 20120510

REACTIONS (3)
  - CARDIAC DISORDER [None]
  - PRODUCT QUALITY ISSUE [None]
  - DRUG INEFFECTIVE [None]
